FAERS Safety Report 7056922-9 (Version None)
Quarter: 2010Q4

REPORT INFORMATION
  Report Type: 
  Country: None (occurrence: None)
  Receive Date: 20101022
  Receipt Date: 20101018
  Transmission Date: 20110411
  Serious: Yes (Other)
  Sender: FDA-Public Use
  Company Number: US-JNJFOC-20101005388

PATIENT
  Age: 72 Year
  Sex: Female
  Weight: 58.06 kg

DRUGS (3)
  1. PEPCID AC [Suspect]
     Route: 048
  2. PEPCID AC [Suspect]
     Indication: DYSPEPSIA
     Route: 048
  3. VITAMIN TAB [Concomitant]

REACTIONS (1)
  - ALBUMIN URINE PRESENT [None]
